FAERS Safety Report 9094910 (Version 1)
Quarter: 2013Q1

REPORT INFORMATION
  Report Type: Spontaneous
  Country: US (occurrence: None)
  Receive Date: 20130214
  Receipt Date: 20130214
  Transmission Date: 20140127
  Serious: Yes (Death, Hospitalization)
  Sender: FDA-Public Use
  Company Number: None

PATIENT
  Age: 66 Year
  Sex: Male
  Weight: 58.3 kg

DRUGS (1)
  1. OXYCODONE [Suspect]
     Indication: PAIN
     Dosage: 15 MG ONCE PO
     Route: 048
     Dates: start: 20121002, end: 20121002

REACTIONS (8)
  - Lethargy [None]
  - Unresponsive to stimuli [None]
  - Blood pressure systolic decreased [None]
  - Oxygen saturation decreased [None]
  - Confusional state [None]
  - Hypotension [None]
  - Respiratory arrest [None]
  - Pulseless electrical activity [None]
